FAERS Safety Report 5108376-7 (Version None)
Quarter: 2006Q3

REPORT INFORMATION
  Report Type: 
  Country: None (occurrence: None)
  Receive Date: 20060731
  Receipt Date: 20060525
  Transmission Date: 20061208
  Serious: No
  Sender: FDA-Public Use
  Company Number: 2006PV014486

PATIENT
  Age: 50 Year
  Sex: Female

DRUGS (2)
  1. BYETTA [Suspect]
     Indication: DIABETES MELLITUS NON-INSULIN-DEPENDENT
     Dosage: 5 MCG;BID;SC
     Route: 058
     Dates: start: 20060525
  2. METFORMIN HCL [Concomitant]

REACTIONS (4)
  - DRY MOUTH [None]
  - ILL-DEFINED DISORDER [None]
  - INJECTION SITE PAIN [None]
  - NASOPHARYNGITIS [None]
